FAERS Safety Report 15677187 (Version 1)
Quarter: 2018Q4

REPORT INFORMATION
  Report Type: Spontaneous
  Country: DE (occurrence: DE)
  Receive Date: 20181130
  Receipt Date: 20181130
  Transmission Date: 20190205
  Serious: Yes (Other)
  Sender: FDA-Public Use
  Company Number: DE-TEVA-2018-DE-979951

PATIENT
  Age: 74 Year
  Sex: Female
  Weight: 59 kg

DRUGS (1)
  1. RISEDRONAT [Suspect]
     Active Substance: RISEDRONATE SODIUM
     Dosage: 35 MG, ONCE A WEEK
     Route: 048
     Dates: start: 20180210, end: 20180421

REACTIONS (4)
  - Myoglobin blood increased [Recovering/Resolving]
  - Myalgia [Recovering/Resolving]
  - Blood creatine phosphokinase increased [Recovering/Resolving]
  - Blood creatine phosphokinase MB [Recovering/Resolving]

NARRATIVE: CASE EVENT DATE: 20180301
